FAERS Safety Report 14626078 (Version 1)
Quarter: 2018Q1

REPORT INFORMATION
  Report Type: Report from Study
  Country: IL (occurrence: IL)
  Receive Date: 20180312
  Receipt Date: 20180312
  Transmission Date: 20180509
  Serious: Yes (Hospitalization)
  Sender: FDA-Public Use
  Company Number: IL-ACTELION-A-CH2018-168630

PATIENT
  Age: 34 Year
  Sex: Male

DRUGS (8)
  1. REMODULIN [Concomitant]
     Active Substance: TREPROSTINIL
     Route: 042
  2. ALDACTONE [Concomitant]
     Active Substance: SPIRONOLACTONE
  3. OPSUMIT [Suspect]
     Active Substance: MACITENTAN
     Indication: PULMONARY ARTERIAL HYPERTENSION
     Dosage: 10 MG, OD
     Route: 048
     Dates: start: 20170628, end: 20180220
  4. FUSID [Concomitant]
     Active Substance: FUROSEMIDE
  5. REVATIO [Concomitant]
     Active Substance: SILDENAFIL CITRATE
  6. ALLORIL [Concomitant]
  7. GLUCOMIN [Concomitant]
     Active Substance: METFORMIN HYDROCHLORIDE
  8. BEZAFIBRATE [Concomitant]
     Active Substance: BEZAFIBRATE

REACTIONS (3)
  - Respiratory disorder [Recovering/Resolving]
  - Concomitant disease aggravated [Recovering/Resolving]
  - Lung transplant [Unknown]

NARRATIVE: CASE EVENT DATE: 20180220
